FAERS Safety Report 9757200 (Version 2)
Quarter: 2013Q4

REPORT INFORMATION
  Report Type: Report from Study
  Country: US (occurrence: US)
  Receive Date: 20131213
  Receipt Date: 20131213
  Transmission Date: 20140711
  Serious: Yes (Hospitalization, Other)
  Sender: FDA-Public Use
  Company Number: US-ABBVIE-12P-163-0949861-00

PATIENT
  Age: 69 Year
  Sex: Male
  Weight: 91.71 kg

DRUGS (31)
  1. HUMIRA [Suspect]
     Indication: CROHN^S DISEASE
     Dosage: 160MG LOADING DOSE
     Dates: start: 20120612
  2. HUMIRA [Suspect]
     Dates: start: 201206, end: 201304
  3. HUMIRA [Suspect]
     Dates: start: 201304
  4. TRILIPIX [Concomitant]
     Indication: BLOOD CHOLESTEROL INCREASED
  5. ZETIA [Concomitant]
     Indication: BLOOD CHOLESTEROL INCREASED
  6. LIPITOR [Concomitant]
     Indication: BLOOD CHOLESTEROL INCREASED
  7. BYSTOLIC [Concomitant]
     Indication: HYPERTENSION
  8. ASPIRIN [Concomitant]
     Indication: CARDIAC DISORDER
  9. ASPIRIN [Concomitant]
     Indication: PROPHYLAXIS
  10. CLONIDINE [Concomitant]
     Indication: HYPERTENSION
  11. XANAX [Concomitant]
     Indication: INSOMNIA
  12. XANAX [Concomitant]
  13. FIORICET [Concomitant]
     Indication: HEADACHE
  14. NORCO [Concomitant]
     Indication: PANCREATITIS
     Dosage: 10/325MG 2 TABLETS Q4H PRN
  15. NORCO [Concomitant]
     Indication: ABDOMINAL PAIN
  16. NORCO [Concomitant]
     Indication: PAIN
  17. IMURAN [Concomitant]
     Indication: CROHN^S DISEASE
     Dosage: DAILY
  18. IMURAN [Concomitant]
  19. IMURAN [Concomitant]
  20. SYNTHROID [Concomitant]
     Indication: HYPOTHYROIDISM
  21. VICODIN ES [Concomitant]
     Indication: PRODUCT USED FOR UNKNOWN INDICATION
  22. MIRALAX [Concomitant]
     Indication: PRODUCT USED FOR UNKNOWN INDICATION
     Dosage: 1 SCOOP MOST DAYS
  23. ZOFRAN [Concomitant]
     Indication: GASTROOESOPHAGEAL REFLUX DISEASE
     Dosage: PRN
  24. ZOFRAN [Concomitant]
     Indication: NAUSEA
  25. PLAVIX [Concomitant]
     Indication: PRODUCT USED FOR UNKNOWN INDICATION
  26. PROVIGIL [Concomitant]
     Indication: PRODUCT USED FOR UNKNOWN INDICATION
  27. NITROSTAT [Concomitant]
     Indication: PRODUCT USED FOR UNKNOWN INDICATION
  28. LANSOPRAZOLE [Concomitant]
     Indication: PRODUCT USED FOR UNKNOWN INDICATION
     Dosage: DAILY
  29. AZULFIDINE [Concomitant]
     Indication: PRODUCT USED FOR UNKNOWN INDICATION
     Dosage: ONLY TAKING 2 G DAILY AT MOST
  30. CARVEDILOL [Concomitant]
     Indication: PRODUCT USED FOR UNKNOWN INDICATION
  31. CPAP [Concomitant]
     Indication: SLEEP APNOEA SYNDROME

REACTIONS (34)
  - Nuclear magnetic resonance imaging abnormal [Recovering/Resolving]
  - Pancreatic duct obstruction [Recovering/Resolving]
  - Amylase increased [Unknown]
  - Asthenia [Unknown]
  - Pancreatitis [Recovered/Resolved]
  - Pancreatitis [Recovered/Resolved]
  - Hypophagia [Unknown]
  - Food intolerance [Unknown]
  - Abdominal discomfort [Unknown]
  - Lipase increased [Unknown]
  - Abdominal pain upper [Not Recovered/Not Resolved]
  - Abdominal pain [Not Recovered/Not Resolved]
  - Insomnia [Recovering/Resolving]
  - Fatigue [Not Recovered/Not Resolved]
  - Decreased appetite [Recovered/Resolved]
  - Weight decreased [Recovered/Resolved]
  - Weight increased [Not Recovered/Not Resolved]
  - Asthenia [Not Recovered/Not Resolved]
  - Sinusitis [Not Recovered/Not Resolved]
  - Fatigue [Recovering/Resolving]
  - Increased appetite [Unknown]
  - Asthenia [Recovering/Resolving]
  - Weight increased [Unknown]
  - Decreased activity [Unknown]
  - Dyspepsia [Unknown]
  - Decreased interest [Unknown]
  - Bone pain [Unknown]
  - Arthralgia [Unknown]
  - Arthritis [Unknown]
  - Gastrooesophageal reflux disease [Unknown]
  - Weight increased [Not Recovered/Not Resolved]
  - Joint stiffness [Recovered/Resolved]
  - Therapeutic response unexpected [Not Recovered/Not Resolved]
  - Arthritis [Not Recovered/Not Resolved]
